FAERS Safety Report 9745377 (Version 1)
Quarter: 2013Q4

REPORT INFORMATION
  Report Type: Spontaneous
  Country: SE (occurrence: SE)
  Receive Date: 20131211
  Receipt Date: 20131211
  Transmission Date: 20140711
  Serious: Yes (Hospitalization)
  Sender: FDA-Public Use
  Company Number: PHHY2013SE143747

PATIENT
  Age: 77 Year
  Sex: Female

DRUGS (2)
  1. STALEVO [Suspect]
     Dosage: 1 DF, TID
     Route: 048
     Dates: start: 20130904, end: 20130919
  2. MADOPARK - SLOW RELEASE [Concomitant]
     Dosage: UNK UKN, UNK
     Dates: start: 20130904

REACTIONS (10)
  - Discomfort [Unknown]
  - Nightmare [Unknown]
  - Tremor [Unknown]
  - Nausea [Unknown]
  - Dizziness [Unknown]
  - Fatigue [Unknown]
  - Anxiety [Unknown]
  - Hallucination [Unknown]
  - Diarrhoea [Unknown]
  - Asthenia [Unknown]
